FAERS Safety Report 6808694-8 (Version None)
Quarter: 2010Q2

REPORT INFORMATION
  Report Type: 
  Country: None (occurrence: None)
  Receive Date: 20100629
  Receipt Date: 20090805
  Transmission Date: 20101027
  Serious: No
  Sender: FDA-Public Use
  Company Number: US-PFIZER INC-2009252995

PATIENT
  Sex: Male
  Weight: 120 kg

DRUGS (5)
  1. ZYVOX [Suspect]
     Indication: ABSCESS
     Dosage: UNK
     Dates: start: 20090601, end: 20090601
  2. INDOCIN [Suspect]
     Indication: GOUT
  3. JANUVIA [Concomitant]
     Dosage: UNK
  4. METFORMIN [Concomitant]
     Dosage: UNK
  5. LISINOPRIL [Concomitant]
     Dosage: UNK

REACTIONS (1)
  - ANAEMIA [None]
